FAERS Safety Report 13892676 (Version 1)
Quarter: 2017Q3

REPORT INFORMATION
  Report Type: Spontaneous
  Country: US (occurrence: US)
  Receive Date: 20170822
  Receipt Date: 20170822
  Transmission Date: 20171127
  Serious: No
  Sender: FDA-Public Use
  Company Number: US-ROCHE-693838

PATIENT
  Age: 22 Year

DRUGS (2)
  1. CORTANCYL [Concomitant]
     Active Substance: PREDNISONE
     Indication: RHEUMATOID ARTHRITIS
     Route: 065
  2. ACTEMRA [Suspect]
     Active Substance: TOCILIZUMAB
     Indication: RHEUMATOID ARTHRITIS
     Dosage: FORM: SHOT
     Route: 065

REACTIONS (3)
  - Rash erythematous [Unknown]
  - Eye swelling [Unknown]
  - Hypersensitivity [Unknown]
